FAERS Safety Report 16363289 (Version 1)
Quarter: 2019Q2

REPORT INFORMATION
  Report Type: Spontaneous
  Country: JP (occurrence: JP)
  Receive Date: 20190528
  Receipt Date: 20190528
  Transmission Date: 20190711
  Serious: Yes (Hospitalization)
  Sender: FDA-Public Use
  Company Number: JP-ALLERGAN-1922253US

PATIENT
  Sex: Female

DRUGS (5)
  1. ALFACALCIDOL [Suspect]
     Active Substance: ALFACALCIDOL
     Indication: PRODUCT USED FOR UNKNOWN INDICATION
     Dosage: 0.5 ?G, QD
     Route: 065
  2. ETANERCEPT [Suspect]
     Active Substance: ETANERCEPT
     Indication: RHEUMATOID ARTHRITIS
     Dosage: 25 MG, Q WEEK
     Route: 058
  3. RISEDRONATE SODIUM - BP [Suspect]
     Active Substance: RISEDRONATE SODIUM
     Indication: PRODUCT USED FOR UNKNOWN INDICATION
     Dosage: 15 MG, Q WEEK
     Route: 065
  4. PREDNISOLONE. [Suspect]
     Active Substance: PREDNISOLONE
     Indication: RHEUMATOID ARTHRITIS
     Dosage: 7 MG, QD
     Route: 065
  5. DEXAMETHASONE PALMITATE [Concomitant]
     Active Substance: DEXAMETHASONE
     Dosage: 2.5 MG

REACTIONS (5)
  - Premature labour [Unknown]
  - Grip strength decreased [Unknown]
  - Pregnancy [Unknown]
  - Arthralgia [Unknown]
  - Live birth [Unknown]
